FAERS Safety Report 6658660-0 (Version None)
Quarter: 2010Q1

REPORT INFORMATION
  Report Type: 
  Country: None (occurrence: None)
  Receive Date: 20100330
  Receipt Date: 20100222
  Transmission Date: 20100710
  Serious: Yes (Hospitalization, Other)
  Sender: FDA-Public Use
  Company Number: PHHY2010TW03113

PATIENT
  Sex: Female
  Weight: 154.4 kg

DRUGS (1)
  1. ICL670A ICL+DISTAB [Suspect]
     Indication: THALASSAEMIA BETA
     Dosage: 2000 MG/DAY
     Route: 048
     Dates: start: 20000226, end: 20100116

REACTIONS (7)
  - ABDOMINAL PAIN [None]
  - DIARRHOEA [None]
  - GASTROENTERITIS [None]
  - GROWTH RETARDATION [None]
  - HYPOGONADISM [None]
  - PYREXIA [None]
  - VOMITING [None]
